FAERS Safety Report 19425657 (Version 1)
Quarter: 2021Q2

REPORT INFORMATION
  Report Type: Spontaneous
  Country: JP (occurrence: JP)
  Receive Date: 20210616
  Receipt Date: 20210616
  Transmission Date: 20210717
  Serious: Yes (Other)
  Sender: FDA-Public Use
  Company Number: JP-ORION CORPORATION ORION PHARMA-ENT 2021-0065

PATIENT
  Sex: Female

DRUGS (2)
  1. COMTAN [Suspect]
     Active Substance: ENTACAPONE
     Indication: PARKINSON^S DISEASE
     Dosage: STRENGTH: 100 MG; 5?6 TIMES A DAY
     Route: 048
  2. LEVODOPA [Concomitant]
     Active Substance: LEVODOPA
     Route: 065

REACTIONS (6)
  - Restlessness [Unknown]
  - Musculoskeletal pain [Unknown]
  - Joint dislocation [Unknown]
  - Asthenia [Unknown]
  - Femur fracture [Unknown]
  - Constipation [Unknown]

NARRATIVE: CASE EVENT DATE: 2019
